FAERS Safety Report 6720178-4 (Version None)
Quarter: 2010Q2

REPORT INFORMATION
  Report Type: 
  Country: None (occurrence: None)
  Receive Date: 20100511
  Receipt Date: 20100510
  Transmission Date: 20101027
  Serious: Yes (Hospitalization)
  Sender: FDA-Public Use
  Company Number: US-CEPHALON-2010002655

PATIENT
  Age: 69 Year
  Sex: Male

DRUGS (2)
  1. TREANDA [Suspect]
     Indication: MANTLE CELL LYMPHOMA
     Dates: start: 20100101
  2. RITUXIMAB [Suspect]
     Indication: MANTLE CELL LYMPHOMA
     Dates: start: 20100101

REACTIONS (1)
  - ANAEMIA HAEMOLYTIC AUTOIMMUNE [None]
